FAERS Safety Report 8194333-3 (Version None)
Quarter: 2012Q1

REPORT INFORMATION
  Report Type: 
  Country: None (occurrence: None)
  Receive Date: 20120308
  Receipt Date: 20120304
  Transmission Date: 20120608
  Serious: No
  Sender: FDA-Public Use
  Company Number: US-PFIZER INC-2012057575

PATIENT
  Sex: Male
  Weight: 104.31 kg

DRUGS (2)
  1. CHANTIX [Suspect]
     Indication: TOBACCO ABUSE
     Dosage: 0.5 MG, DAILY
     Route: 048
     Dates: start: 20120226, end: 20120101
  2. CHANTIX [Suspect]
     Dosage: UNK
     Route: 048
     Dates: start: 20120101

REACTIONS (6)
  - EMOTIONAL DISORDER [None]
  - DISTURBANCE IN ATTENTION [None]
  - AGITATION [None]
  - NERVOUSNESS [None]
  - MOOD SWINGS [None]
  - FEELING ABNORMAL [None]
